FAERS Safety Report 24464249 (Version 1)
Quarter: 2024Q4

REPORT INFORMATION
  Report Type: Report from Study
  Country: US (occurrence: US)
  Receive Date: 20241018
  Receipt Date: 20241018
  Transmission Date: 20250115
  Serious: No
  Sender: ROCHE
  Company Number: US-ROCHE-3487651

PATIENT
  Age: 48 Year
  Sex: Female

DRUGS (2)
  1. XOLAIR [Suspect]
     Active Substance: OMALIZUMAB
     Indication: Chronic spontaneous urticaria
     Dosage: STRENGTH: 150 MG/ML, 2 150MG PRE-FILLED SYRINGES EVERY 2 WEEKS
     Route: 058
  2. XOLAIR [Suspect]
     Active Substance: OMALIZUMAB
     Route: 058

REACTIONS (7)
  - Influenza [Unknown]
  - Off label use [Unknown]
  - Product complaint [Unknown]
  - Underdose [Unknown]
  - Device issue [Unknown]
  - Illness [Unknown]
  - Needle issue [Unknown]

NARRATIVE: CASE EVENT DATE: 20240204
